FAERS Safety Report 6003040-4 (Version None)
Quarter: 2008Q4

REPORT INFORMATION
  Report Type: 
  Country: None (occurrence: None)
  Receive Date: 20081215
  Receipt Date: 20081209
  Transmission Date: 20090506
  Serious: Yes (Life-Threatening, Other)
  Sender: FDA-Public Use
  Company Number: US-PFIZER INC-2008095432

PATIENT
  Sex: Male
  Weight: 96.145 kg

DRUGS (9)
  1. INHALED HUMAN INSULIN [Suspect]
     Indication: DIABETES MELLITUS
     Dosage: UD:3MG, 1MG
     Route: 055
     Dates: start: 20070403, end: 20070623
  2. AVANDARYL [Concomitant]
     Route: 048
     Dates: start: 20060623
  3. GLUCOPHAGE XR [Concomitant]
     Route: 048
     Dates: start: 20060623
  4. LANTUS [Concomitant]
     Route: 058
     Dates: start: 20061020
  5. ZETIA [Concomitant]
     Route: 048
  6. MICARDIS [Concomitant]
     Route: 048
  7. WELCHOL [Concomitant]
     Route: 048
  8. TRICOR [Concomitant]
     Route: 048
  9. CRESTOR [Concomitant]
     Route: 048

REACTIONS (1)
  - PULMONARY MASS [None]
